FAERS Safety Report 11176486 (Version 1)
Quarter: 2015Q2

REPORT INFORMATION
  Report Type: Spontaneous
  Country: US (occurrence: US)
  Receive Date: 20150610
  Receipt Date: 20150610
  Transmission Date: 20150821
  Serious: Yes (Hospitalization, Other)
  Sender: FDA-Public Use
  Company Number: US-TEVA-568188USA

PATIENT
  Age: 62 Year
  Sex: Female

DRUGS (2)
  1. TEMOZOLOMIDE. [Suspect]
     Active Substance: TEMOZOLOMIDE
     Indication: CHEMOTHERAPY
     Dosage: 20 MILLIGRAM DAILY; AT BEDTIME 1 HOUR AFTER TAKING ZOFRAN FOR 7 DAYS A WEEK UNDERGOING RADIATION
     Route: 048
  2. TEMOZOLOMIDE. [Suspect]
     Active Substance: TEMOZOLOMIDE
     Dosage: 100 MILLIGRAM DAILY; AT BEDTIME 1 HOUR AFTER TAKING ZOFRAN FOR 7 DAYS A WEEK UNDERGOING RADIATION
     Route: 048

REACTIONS (2)
  - Pneumonia [Not Recovered/Not Resolved]
  - Urinary tract infection [Not Recovered/Not Resolved]
